FAERS Safety Report 8407178-3 (Version None)
Quarter: 2012Q2

REPORT INFORMATION
  Report Type: 
  Country: None (occurrence: None)
  Receive Date: 20120604
  Receipt Date: 20120524
  Transmission Date: 20120825
  Serious: Yes (Other)
  Sender: FDA-Public Use
  Company Number: DE-ASTRAZENECA-2012SE34016

PATIENT
  Age: 25750 Day
  Sex: Male
  Weight: 79 kg

DRUGS (2)
  1. BRILINTA [Suspect]
     Route: 048
     Dates: start: 20110901
  2. BRILINTA [Suspect]
     Indication: CORONARY ARTERY DISEASE
     Route: 048
     Dates: start: 20110901

REACTIONS (1)
  - GOUT [None]
